FAERS Safety Report 7235858-4 (Version None)
Quarter: 2011Q1

REPORT INFORMATION
  Report Type: 
  Country: None (occurrence: None)
  Receive Date: 20110120
  Receipt Date: 20110110
  Transmission Date: 20110831
  Serious: Yes (Congenital Anomaly, Other)
  Sender: FDA-Public Use
  Company Number: FR-ROCHE-752173

PATIENT
  Sex: Female

DRUGS (4)
  1. PYRIMETHAMINE/SULFADOXINE [Suspect]
     Indication: TOXOPLASMOSIS
     Route: 065
  2. SPIRAMYCIN [Suspect]
     Indication: TOXOPLASMOSIS
     Dosage: DOSE 9X10^6 SI UNITS PER DAY
     Route: 065
  3. PYRIMETHAMINE/SULFADOXINE [Suspect]
     Dosage: PYRIMETHAMINE 50 MG AND SULFADOXINE 1000 MG
     Route: 065
  4. FOLINIC ACID [Concomitant]

REACTIONS (10)
  - DILATATION VENTRICULAR [None]
  - ASCITES [None]
  - FOETAL GROWTH RESTRICTION [None]
  - CHORIORETINITIS [None]
  - CONGENITAL TOXOPLASMOSIS [None]
  - EPILEPSY [None]
  - INTRA-UTERINE DEATH [None]
  - PSYCHOMOTOR SKILLS IMPAIRED [None]
  - ABORTION INDUCED [None]
  - LIVE BIRTH [None]
